FAERS Safety Report 4326375-X (Version None)
Quarter: 2004Q1

REPORT INFORMATION
  Report Type: 
  Country: None (occurrence: None)
  Receive Date: 20040330
  Receipt Date: 20040322
  Transmission Date: 20041129
  Serious: Yes (Death)
  Sender: FDA-Public Use
  Company Number: 200412178US

PATIENT
  Sex: Male

DRUGS (1)
  1. TAXOTERE [Suspect]
     Indication: PROSTATE CANCER

REACTIONS (3)
  - CHEST DISCOMFORT [None]
  - RESPIRATORY FAILURE [None]
  - SALIVARY HYPERSECRETION [None]
